FAERS Safety Report 6718655-5 (Version None)
Quarter: 2010Q2

REPORT INFORMATION
  Report Type: 
  Country: None (occurrence: None)
  Receive Date: 20100510
  Receipt Date: 20100427
  Transmission Date: 20101027
  Serious: Yes (Hospitalization)
  Sender: FDA-Public Use
  Company Number: DE-AMGEN-US374036

PATIENT
  Sex: Female
  Weight: 87.1 kg

DRUGS (11)
  1. ENBREL [Suspect]
     Indication: RHEUMATOID ARTHRITIS
     Route: 058
     Dates: start: 20090520, end: 20091001
  2. METEX [Suspect]
     Indication: RHEUMATOID ARTHRITIS
     Route: 058
     Dates: start: 20080401, end: 20091001
  3. METEX [Suspect]
     Route: 058
     Dates: start: 20091101
  4. CALCIMAGON [Concomitant]
     Route: 048
  5. IBUPROFEN [Concomitant]
     Route: 048
  6. PREDNISOLONE [Concomitant]
     Route: 048
     Dates: start: 20080101, end: 20090826
  7. ENALAPRIL MALEATE [Concomitant]
     Route: 048
  8. VERAPAMIL [Concomitant]
     Route: 048
  9. XIPAMIDE [Concomitant]
     Route: 048
  10. ISOZID [Concomitant]
     Route: 048
     Dates: start: 20090401, end: 20091201
  11. TILIDINE [Concomitant]
     Route: 048

REACTIONS (4)
  - INTERVERTEBRAL DISC PROTRUSION [None]
  - OSTEOCHONDROSIS [None]
  - PNEUMONIA [None]
  - SUBILEUS [None]
